FAERS Safety Report 9137759 (Version 1)
Quarter: 2013Q1

REPORT INFORMATION
  Report Type: Spontaneous
  Country: MX (occurrence: MX)
  Receive Date: 20130304
  Receipt Date: 20130304
  Transmission Date: 20140127
  Serious: Yes (Hospitalization, Other)
  Sender: FDA-Public Use
  Company Number: PHHY2013MX021059

PATIENT
  Age: 80 Year
  Sex: Female

DRUGS (1)
  1. EXELON PATCH [Suspect]
     Indication: DEMENTIA
     Dosage: 9.5 MG, DAILY
     Route: 062
     Dates: start: 2010, end: 201302

REACTIONS (5)
  - Metabolic disorder [Not Recovered/Not Resolved]
  - Aphagia [Not Recovered/Not Resolved]
  - Malnutrition [Not Recovered/Not Resolved]
  - Anaemia [Not Recovered/Not Resolved]
  - Urinary tract infection [Not Recovered/Not Resolved]
